FAERS Safety Report 4759829-2 (Version None)
Quarter: 2005Q3

REPORT INFORMATION
  Report Type: 
  Country: None (occurrence: None)
  Receive Date: 20050831
  Receipt Date: 20050831
  Transmission Date: 20060218
  Serious: Yes (Hospitalization)
  Sender: FDA-Public Use
  Company Number: None

PATIENT
  Age: 36 Year
  Sex: Male

DRUGS (1)
  1. TERAZOSIN        1MG, 2MG AND 10 MG    SANDOZ [Suspect]
     Indication: URINARY RETENTION
     Dosage: QD    PO
     Route: 048
     Dates: start: 20050715, end: 20050809

REACTIONS (1)
  - PRIAPISM [None]
